FAERS Safety Report 11377538 (Version 1)
Quarter: 2015Q3

REPORT INFORMATION
  Report Type: Spontaneous
  Country: US (occurrence: US)
  Receive Date: 20150811
  Receipt Date: 20150811
  Transmission Date: 20151125
  Serious: No
  Sender: FDA-Public Use
  Company Number: US-ELI_LILLY_AND_COMPANY-US200902005034

PATIENT
  Sex: Male

DRUGS (3)
  1. HUMULIN N [Suspect]
     Active Substance: INSULIN HUMAN
     Dosage: UNK, UNK
     Dates: start: 20090205
  2. HUMULIN N [Suspect]
     Active Substance: INSULIN HUMAN
  3. HUMULIN R [Suspect]
     Active Substance: INSULIN HUMAN
     Dates: start: 200812

REACTIONS (5)
  - Dysstasia [Not Recovered/Not Resolved]
  - Eye discharge [Unknown]
  - Feeling abnormal [Unknown]
  - Rhinorrhoea [Unknown]
  - Headache [Unknown]

NARRATIVE: CASE EVENT DATE: 200901
